FAERS Safety Report 6390294-8 (Version None)
Quarter: 2009Q4

REPORT INFORMATION
  Report Type: 
  Country: None (occurrence: None)
  Receive Date: 20091003
  Receipt Date: 20090924
  Transmission Date: 20100525
  Serious: Yes (Death, Hospitalization)
  Sender: FDA-Public Use
  Company Number: 2009AL004452

PATIENT
  Age: 29 Year
  Sex: Female
  Weight: 125 kg

DRUGS (101)
  1. DIGOXIN [Suspect]
     Dosage: 0.125MG, DAILY, PO
     Route: 048
  2. LASIX [Concomitant]
  3. K-DUR [Concomitant]
  4. SPIRONOLACTONE [Concomitant]
  5. TEQUIN [Concomitant]
  6. ROBITUSSIN [Concomitant]
  7. COREG [Concomitant]
  8. ZAROXOLYN [Concomitant]
  9. COUMADIN [Concomitant]
  10. LIPITOR [Concomitant]
  11. METOPROLOL [Concomitant]
  12. LISINOPRIL [Concomitant]
  13. KAY CIEL DURA-TABS [Concomitant]
  14. BETAPACE [Concomitant]
  15. LEVAQUIN [Concomitant]
  16. COMBIVENT [Concomitant]
  17. NATRECOR [Concomitant]
  18. AMIODARONE [Concomitant]
  19. PRIMACOR [Concomitant]
  20. ALPRAZOLAM [Concomitant]
  21. METOLAZONE [Concomitant]
  22. PROTONIX [Concomitant]
  23. HEPARIN [Concomitant]
  24. ASPIRIN [Concomitant]
  25. DIPYRIDAMOLE [Concomitant]
  26. MAGNESIUM OXIDE [Concomitant]
  27. RAMIPRIL [Concomitant]
  28. COLACE [Concomitant]
  29. CHLORHEXIDINE GLUCONATE [Concomitant]
  30. EPLERENONE [Concomitant]
  31. TORSEMIDE [Concomitant]
  32. LOVENOX [Concomitant]
  33. CEFTAZIDINE [Concomitant]
  34. VANCOMYCIN [Concomitant]
  35. LACTOBACILLUS ACIDOPHILUS [Concomitant]
  36. MULTI-VITAMIN [Concomitant]
  37. FOLIC ACID [Concomitant]
  38. BACITRACIN [Concomitant]
  39. URSODIOL [Concomitant]
  40. HYDROMORPHONE [Concomitant]
  41. CLONAZEPAM [Concomitant]
  42. TOBRAMYCIN [Concomitant]
  43. PREGABALIN [Concomitant]
  44. ARANESP [Concomitant]
  45. ZOFRAN [Concomitant]
  46. SENNA [Concomitant]
  47. ZYPREXA [Concomitant]
  48. VITAMIN K TAB [Concomitant]
  49. ACETAMINOPHEN AND HYDROCODONE BITARTRATE [Concomitant]
  50. FEXOFENADINE [Concomitant]
  51. MORPHINE [Concomitant]
  52. PREDNISONE [Concomitant]
  53. LYRICA [Concomitant]
  54. PROPRANOLOL [Concomitant]
  55. SEROQUEL [Concomitant]
  56. TOBRAMYCIN [Concomitant]
  57. ACETAZOLAMIDE [Concomitant]
  58. ALTEPLASE [Concomitant]
  59. CALCIUM CHLORIDE [Concomitant]
  60. EPOPROSTENOL [Concomitant]
  61. FENTANYL [Concomitant]
  62. LEXAPRO [Concomitant]
  63. FLUCONAZOLE [Concomitant]
  64. INSULIN [Concomitant]
  65. LACTULOSE [Concomitant]
  66. LANSOPRAZOLE [Concomitant]
  67. LIDOCAINE [Concomitant]
  68. LORAZEPAM [Concomitant]
  69. MAGNESIUM SULFATE [Concomitant]
  70. MANNITOL [Concomitant]
  71. MEROPENEM [Concomitant]
  72. METHYLPREDNISOLONE [Concomitant]
  73. METOCLOPRAMIDE [Concomitant]
  74. VIAGRA [Concomitant]
  75. IPRATROPIUM [Concomitant]
  76. RAPAMUNE [Concomitant]
  77. SULFAMETHOXAZOLE AND TRIMETHOPRIM [Concomitant]
  78. TACROLIMUS [Concomitant]
  79. CODEINE [Concomitant]
  80. ALUM-MAG-HYDROXIDE-SIMETH [Concomitant]
  81. BISACODYL [Concomitant]
  82. DIPHENHYDRMINE [Concomitant]
  83. MIDAZOLAM HCL [Concomitant]
  84. MUPIROCIN [Concomitant]
  85. AMINOCAPROIC ACID [Concomitant]
  86. BASILIXIMAB [Concomitant]
  87. ALUMINUM HYDROXIDE GEL [Concomitant]
  88. AMIKACIN [Concomitant]
  89. BUMETADINE [Concomitant]
  90. CLOTRIMAZOLE [Concomitant]
  91. COLISTIMETHATE SODIUM [Concomitant]
  92. COSYNTROPIN [Concomitant]
  93. XENADERM [Concomitant]
  94. GLUTAMINE [Concomitant]
  95. ANTITHROMBIN [Concomitant]
  96. CEFEPIME [Concomitant]
  97. MIRALAX [Concomitant]
  98. POTASSIUM BICARBONATE [Concomitant]
  99. SODIUM BICARBONATE IN PLASTIC CONTAINER [Concomitant]
  100. ACETAMINOPHEN [Concomitant]
  101. ACETAMINOPHEN #3 [Concomitant]

REACTIONS (69)
  - ABDOMINAL INFECTION [None]
  - ABDOMINAL PAIN UPPER [None]
  - ACIDOSIS [None]
  - ARTERIAL OCCLUSIVE DISEASE [None]
  - ASTHENIA [None]
  - BACK PAIN [None]
  - BLOOD CHOLESTEROL INCREASED [None]
  - BRONCHITIS [None]
  - BRONCHOPLEURAL FISTULA [None]
  - CARDIAC FAILURE CONGESTIVE [None]
  - CARDIOMEGALY [None]
  - CARDIOMYOPATHY [None]
  - CARDIORENAL SYNDROME [None]
  - CHEST DISCOMFORT [None]
  - CLAUSTROPHOBIA [None]
  - DECUBITUS ULCER [None]
  - DEEP VEIN THROMBOSIS [None]
  - DYSPNOEA [None]
  - ECONOMIC PROBLEM [None]
  - ENCEPHALOPATHY [None]
  - ENDOMETRIAL CANCER [None]
  - ENDOMETRIAL HYPERPLASIA [None]
  - FATIGUE [None]
  - FLANK PAIN [None]
  - FLUID OVERLOAD [None]
  - HAEMODIALYSIS [None]
  - HAEMOTHORAX [None]
  - HAIR GROWTH ABNORMAL [None]
  - HYPERBILIRUBINAEMIA [None]
  - HYPERCAPNIA [None]
  - HYPERCHOLESTEROLAEMIA [None]
  - HYPERTENSION [None]
  - INFERTILITY [None]
  - INFLUENZA LIKE ILLNESS [None]
  - INTRACARDIAC THROMBUS [None]
  - JAUNDICE [None]
  - LEG AMPUTATION [None]
  - LOBAR PNEUMONIA [None]
  - MEDIASTINITIS [None]
  - MENSTRUATION IRREGULAR [None]
  - MITRAL VALVE INCOMPETENCE [None]
  - MULTIPLE INJURIES [None]
  - MYALGIA [None]
  - NAUSEA [None]
  - ORTHOPNOEA [None]
  - PALLOR [None]
  - PALPITATIONS [None]
  - POLLAKIURIA [None]
  - POLYCYSTIC OVARIES [None]
  - POST PROCEDURAL COMPLICATION [None]
  - PRESYNCOPE [None]
  - PULMONARY HYPERTENSION [None]
  - RENAL CANCER [None]
  - RENAL FAILURE ACUTE [None]
  - RESPIRATORY DISTRESS [None]
  - SEPSIS [None]
  - SLEEP APNOEA SYNDROME [None]
  - SUBDURAL HAEMATOMA [None]
  - SURGERY [None]
  - TREATMENT NONCOMPLIANCE [None]
  - TUBERCULIN TEST POSITIVE [None]
  - UPPER RESPIRATORY TRACT INFECTION [None]
  - URINARY INCONTINENCE [None]
  - URINARY TRACT INFECTION [None]
  - VENTRICULAR TACHYCARDIA [None]
  - VOMITING [None]
  - WEIGHT INCREASED [None]
  - WOUND [None]
  - WOUND INFECTION [None]
